FAERS Safety Report 20865658 (Version 13)
Quarter: 2022Q3

REPORT INFORMATION
  Report Type: Report from Study
  Country: DE (occurrence: None)
  Receive Date: 20220524
  Receipt Date: 20220804
  Transmission Date: 20221027
  Serious: Yes (Hospitalization)
  Sender: FDA-Public Use
  Company Number: DE-Eisai Medical Research-EC-2022-115301

PATIENT
  Age: 77 Year
  Sex: Male
  Weight: 97 kg

DRUGS (12)
  1. LENVATINIB [Suspect]
     Active Substance: LENVATINIB
     Indication: Clear cell renal cell carcinoma
     Dosage: STARTING DOSE AT 20 MG, FLUCTUATED DOSAGE
     Route: 048
     Dates: start: 20220322, end: 20220412
  2. LENVATINIB [Suspect]
     Active Substance: LENVATINIB
     Route: 048
     Dates: start: 20220509
  3. QUAVONLIMAB [Suspect]
     Active Substance: QUAVONLIMAB
     Indication: Clear cell renal cell carcinoma
     Dosage: QUAVONLIMAB  (MK-1308) 25 MG (+) PEMBROLIZUMAB (MK-3475) 400 MG
     Route: 042
     Dates: start: 20220322, end: 20220322
  4. PEMBROLIZUMAB [Suspect]
     Active Substance: PEMBROLIZUMAB
     Dosage: QUAVONLIMAB  (MK-1308) 25 MG (+) PEMBROLIZUMAB (MK-3475) 400 MG
     Route: 042
     Dates: start: 20220509
  5. PREGABALIN [Concomitant]
     Active Substance: PREGABALIN
     Dates: start: 20200101
  6. PERINDOPRIL [Concomitant]
     Active Substance: PERINDOPRIL
     Dates: start: 202001
  7. LEVODOPA [Concomitant]
     Active Substance: LEVODOPA
     Dates: start: 202001
  8. BENSERAZIDE [Concomitant]
     Active Substance: BENSERAZIDE
     Dates: start: 202001
  9. INDAPAMIDE [Concomitant]
     Active Substance: INDAPAMIDE
     Dates: start: 202001
  10. DIPYRONE [Concomitant]
     Active Substance: DIPYRONE
     Dates: start: 202001
  11. PANTOPRAZOLE [Concomitant]
     Active Substance: PANTOPRAZOLE
     Dates: start: 20220322, end: 20220419
  12. RAMIPRIL [Concomitant]
     Active Substance: RAMIPRIL
     Dates: start: 20220328, end: 20220519

REACTIONS (1)
  - Diarrhoea [Recovered/Resolved]

NARRATIVE: CASE EVENT DATE: 20220406
